FAERS Safety Report 12109776 (Version 1)
Quarter: 2016Q1

REPORT INFORMATION
  Report Type: Spontaneous
  Country: US (occurrence: None)
  Receive Date: 20160223
  Receipt Date: 20160223
  Transmission Date: 20160526
  Serious: No
  Sender: FDA-Public Use
  Company Number: None

PATIENT
  Age: 44 Year
  Sex: Female
  Weight: 76.2 kg

DRUGS (13)
  1. LISINOPRIL. [Concomitant]
     Active Substance: LISINOPRIL
  2. SIMVASTATIN. [Concomitant]
     Active Substance: SIMVASTATIN
  3. LIPITOR [Concomitant]
     Active Substance: ATORVASTATIN CALCIUM
  4. LAMOTRIGINE. [Concomitant]
     Active Substance: LAMOTRIGINE
  5. HUMALOG [Concomitant]
     Active Substance: INSULIN LISPRO
  6. METOPROLOL. [Concomitant]
     Active Substance: METOPROLOL
  7. TYLENOL EXTRA STRENGTH [Concomitant]
     Active Substance: ACETAMINOPHEN
  8. HYDROCHLORIDE [Concomitant]
     Active Substance: UNSPECIFIED INGREDIENT
  9. VENTOLIN HFA [Concomitant]
     Active Substance: ALBUTEROL SULFATE
  10. TYLENOL ARTHRITIS PAIN [Concomitant]
     Active Substance: ACETAMINOPHEN
  11. ASPIRIN. [Concomitant]
     Active Substance: ASPIRIN
  12. BYDUREON [Suspect]
     Active Substance: EXENATIDE
     Indication: TYPE 2 DIABETES MELLITUS
     Route: 058
     Dates: start: 20160203, end: 20160217
  13. METFORMIN [Concomitant]
     Active Substance: METFORMIN HYDROCHLORIDE

REACTIONS (3)
  - Injection site pruritus [None]
  - Nodule [None]
  - Skin disorder [None]
